FAERS Safety Report 8083184-6 (Version None)
Quarter: 2012Q1

REPORT INFORMATION
  Report Type: 
  Country: None (occurrence: None)
  Receive Date: 20120127
  Receipt Date: 20110211
  Transmission Date: 20120608
  Serious: No
  Sender: FDA-Public Use
  Company Number: US-ABBOTT-11P-163-0704654-00

PATIENT
  Age: 67 Year
  Sex: Female

DRUGS (16)
  1. SINGULAIR [Concomitant]
     Indication: HYPERSENSITIVITY
     Dosage: 10MG DAILY
  2. LISINOPRIL [Concomitant]
     Indication: HYPERTENSION
     Dosage: 20MG DAILY
  3. PRILOSEC [Concomitant]
     Indication: PROPHYLAXIS
     Dosage: DAILY
  4. METFFORMIN HYDROCHLORIDE [Concomitant]
     Indication: DIABETES MELLITUS
     Dosage: 500MG DAILY
  5. HYDROCHLOROT [Concomitant]
     Indication: HYPERTENSION
     Dosage: 25MG DAILY
  6. HYDROXYCHLOR [Concomitant]
     Indication: PRODUCT USED FOR UNKNOWN INDICATION
     Dosage: 200MG DAILY
  7. ARTHROTEC [Concomitant]
     Indication: ARTHRITIS
     Dosage: 50MG- 2-3 TIMES A DAY
  8. ZOLOFT [Concomitant]
     Indication: DEPRESSION
     Dosage: 100MG DAILY
  9. HUMIRA [Suspect]
     Indication: RHEUMATOID ARTHRITIS
     Dates: start: 20101201, end: 20110208
  10. DILTIAZEM HCL [Concomitant]
     Indication: PROPHYLAXIS
  11. PREDNISONE TAB [Concomitant]
     Indication: PRODUCT USED FOR UNKNOWN INDICATION
     Dosage: 10MG DAILY
  12. FISH OIL [Concomitant]
     Indication: PRODUCT USED FOR UNKNOWN INDICATION
     Dosage: DAILY
  13. ALBUTEROL [Concomitant]
     Indication: ASTHMA
     Dosage: PRN
  14. METHOTREXATE [Concomitant]
     Indication: PRODUCT USED FOR UNKNOWN INDICATION
     Dosage: 2.5MG- 8 TABLETS WEEKLY
  15. ZOLOFT [Concomitant]
     Indication: ANXIETY
  16. TRAMADOL HCL [Concomitant]
     Indication: PAIN
     Dosage: PRN

REACTIONS (8)
  - JOINT SWELLING [None]
  - PYREXIA [None]
  - HYPERSOMNIA [None]
  - OEDEMA PERIPHERAL [None]
  - DECREASED APPETITE [None]
  - CHILLS [None]
  - ABDOMINAL DISCOMFORT [None]
  - DRUG INEFFECTIVE [None]
